FAERS Safety Report 19212812 (Version 1)
Quarter: 2021Q2

REPORT INFORMATION
  Report Type: Spontaneous
  Country: CO (occurrence: CO)
  Receive Date: 20210504
  Receipt Date: 20210504
  Transmission Date: 20210717
  Serious: Yes (Other)
  Sender: FDA-Public Use
  Company Number: CO-PFIZER INC-2021447907

PATIENT

DRUGS (3)
  1. OZONE [Suspect]
     Active Substance: OZONE
     Dosage: 5 ML
     Route: 050
  2. DEPO?MEDROL [Suspect]
     Active Substance: METHYLPREDNISOLONE ACETATE
     Dosage: 1 ML
     Route: 050
  3. BUPIVACAINE HCL [Suspect]
     Active Substance: BUPIVACAINE HYDROCHLORIDE
     Dosage: UNK
     Route: 050

REACTIONS (5)
  - Neurotoxicity [Unknown]
  - Product preparation error [Unknown]
  - Off label use [Unknown]
  - Product use issue [Unknown]
  - Reaction to excipient [Unknown]

NARRATIVE: CASE EVENT DATE: 2017
